FAERS Safety Report 16642034 (Version 1)
Quarter: 2019Q3

REPORT INFORMATION
  Report Type: Spontaneous
  Country: US (occurrence: US)
  Receive Date: 20190729
  Receipt Date: 20190729
  Transmission Date: 20191004
  Serious: No
  Sender: FDA-Public Use
  Company Number: US-AMGEN-USASP2019117720

PATIENT
  Age: 80 Year
  Sex: Female

DRUGS (2)
  1. LOSARTAN. [Concomitant]
     Active Substance: LOSARTAN
     Indication: HYPERTENSION
  2. PROLIA [Suspect]
     Active Substance: DENOSUMAB
     Indication: OSTEOPOROSIS POSTMENOPAUSAL
     Dosage: 60 MILLIGRAM
     Route: 065
     Dates: start: 20180828

REACTIONS (7)
  - Joint swelling [Unknown]
  - Pain in extremity [Unknown]
  - Pruritus generalised [Unknown]
  - Muscular weakness [Unknown]
  - Arthralgia [Unknown]
  - Chills [Recovered/Resolved]
  - Mass [Unknown]

NARRATIVE: CASE EVENT DATE: 2018
